FAERS Safety Report 24052711 (Version 1)
Quarter: 2024Q3

REPORT INFORMATION
  Report Type: Spontaneous
  Country: US (occurrence: US)
  Receive Date: 20240705
  Receipt Date: 20240705
  Transmission Date: 20241017
  Serious: Yes (Other)
  Sender: BRISTOL MYERS SQUIBB
  Company Number: US-BRISTOL-MYERS SQUIBB COMPANY-2024-106807

PATIENT
  Age: 86 Year
  Sex: Male

DRUGS (1)
  1. REVLIMID [Suspect]
     Active Substance: LENALIDOMIDE
     Indication: Plasma cell myeloma
     Dosage: FREQUENCY: TAKE 1 CAPSULE (10MG) BY MOUTH EVERY DAY FOR 3 WEEKS ON, 1 WEEK OFF
     Route: 048

REACTIONS (3)
  - Spinal fracture [Unknown]
  - Fracture pain [Not Recovered/Not Resolved]
  - Fatigue [Unknown]
